FAERS Safety Report 18120670 (Version 4)
Quarter: 2020Q4

REPORT INFORMATION
  Report Type: Report from Study
  Country: DE (occurrence: DE)
  Receive Date: 20200806
  Receipt Date: 20201006
  Transmission Date: 20210113
  Serious: No
  Sender: FDA-Public Use
  Company Number: DE-AMGEN-DEUNI2020125304

PATIENT
  Age: 81 Year
  Sex: Male
  Weight: 80 kg

DRUGS (20)
  1. FOLINIC ACID [Suspect]
     Active Substance: LEUCOVORIN
     Dosage: 630 MILLIGRAM
     Route: 065
     Dates: start: 20200127
  2. PANITUMUMAB [Suspect]
     Active Substance: PANITUMUMAB
     Indication: COLORECTAL CANCER METASTATIC
     Dosage: 480 MILLIGRAM
     Route: 042
     Dates: start: 20190313
  3. IRINOTECAN [Suspect]
     Active Substance: IRINOTECAN
     Dosage: 285 MILLIGRAM
     Route: 065
     Dates: start: 20200127
  4. ASS RATIOPHARM [Concomitant]
     Active Substance: ASPIRIN
     Dosage: 100 MILLIGRAM, QD
     Route: 048
  5. PANITUMUMAB [Suspect]
     Active Substance: PANITUMUMAB
     Dosage: 387 MILLIGRAM
     Route: 042
     Dates: start: 20200309
  6. FLUOROURACIL. [Suspect]
     Active Substance: FLUOROURACIL
     Dosage: 3680 MILLIGRAM
     Route: 042
     Dates: start: 20200127
  7. DUODART [Concomitant]
     Active Substance: DUTASTERIDE\TAMSULOSIN
     Indication: BENIGN PROSTATIC HYPERPLASIA
     Dosage: 0.5 MILLIGRAM, QD
     Route: 048
  8. PANITUMUMAB [Suspect]
     Active Substance: PANITUMUMAB
     Dosage: 516 MILLIGRAM
     Route: 042
     Dates: start: 20200127
  9. FOLINIC ACID [Suspect]
     Active Substance: LEUCOVORIN
     Indication: COLORECTAL CANCER METASTATIC
     Dosage: 611 MILLIGRAM
     Route: 065
     Dates: start: 20190313
  10. IRINOTECAN [Suspect]
     Active Substance: IRINOTECAN
     Dosage: 284 MILLIGRAM
     Route: 065
     Dates: start: 20200210
  11. IRINOTECAN [Suspect]
     Active Substance: IRINOTECAN
     Dosage: 227 MILLIGRAM
     Route: 065
     Dates: start: 20200630
  12. FOLINIC ACID [Suspect]
     Active Substance: LEUCOVORIN
     Dosage: 504 MILLIGRAM
     Route: 065
     Dates: start: 20200623
  13. FLUOROURACIL. [Suspect]
     Active Substance: FLUOROURACIL
     Dosage: 3670 MILLIGRAM
     Route: 042
     Dates: start: 20190327
  14. MINOCYCLIN RATIOPHARM [Concomitant]
     Active Substance: MINOCYCLINE HYDROCHLORIDE
     Indication: PROPHYLAXIS
     Dosage: 50 MILLIGRAM, QD
     Route: 048
     Dates: start: 20190313
  15. IRINOTECAN [Suspect]
     Active Substance: IRINOTECAN
     Indication: COLORECTAL CANCER METASTATIC
     Dosage: 275 MILLIGRAM
     Route: 065
     Dates: start: 20190313
  16. IRINOTECAN [Suspect]
     Active Substance: IRINOTECAN
     Dosage: 200 MILLIGRAM
     Route: 065
     Dates: start: 20190327
  17. FLUOROURACIL. [Suspect]
     Active Substance: FLUOROURACIL
     Dosage: 3020 MILLIGRAM
     Route: 065
     Dates: start: 20200630
  18. FLUOROURACIL. [Suspect]
     Active Substance: FLUOROURACIL
     Indication: COLORECTAL CANCER METASTATIC
     Dosage: 611 MILLIGRAM
     Route: 040
     Dates: start: 20190327
  19. FLUOROURACIL. [Suspect]
     Active Substance: FLUOROURACIL
     Dosage: 400 MILLIGRAM
     Route: 040
     Dates: start: 20190409
  20. IRINOTECAN [Suspect]
     Active Substance: IRINOTECAN
     Dosage: 275 MILLIGRAM
     Route: 065
     Dates: start: 20190507

REACTIONS (2)
  - Rash follicular [Recovering/Resolving]
  - Rash pustular [Recovering/Resolving]

NARRATIVE: CASE EVENT DATE: 20200616
